FAERS Safety Report 9465483 (Version 2)
Quarter: 2013Q3

REPORT INFORMATION
  Report Type: Report from Study
  Country: CA (occurrence: CA)
  Receive Date: 20130820
  Receipt Date: 20130909
  Transmission Date: 20140515
  Serious: Yes (Death)
  Sender: FDA-Public Use
  Company Number: PHHY2013CA089395

PATIENT
  Age: 50 Year
  Sex: Male

DRUGS (10)
  1. CLOZARIL [Suspect]
     Indication: SCHIZOPHRENIA
     Dosage: UNK
     Route: 048
     Dates: start: 19990226
  2. ATORVASTATIN [Concomitant]
     Dosage: 20 MG, UNK
  3. CITALOPRAM [Concomitant]
     Dosage: 20 MG, UNK
  4. CLONAZEPAM [Concomitant]
     Dosage: 0.5 MG, BID
  5. CLONIDIN [Concomitant]
     Dosage: 2 MG, BID
  6. CLOZAPIN [Concomitant]
     Dosage: 200 MG, UNK
  7. DOCUSATE SODIUM [Concomitant]
     Dosage: 100 MG, BID
  8. LEVODOPA CARBID [Concomitant]
     Dosage: 2 DF (100/25), TID
  9. ELTROXIN [Concomitant]
     Dosage: 0.05 MG, UNK
  10. TERAZOSIN [Concomitant]
     Dosage: 5 MG, BID

REACTIONS (1)
  - Death [Fatal]
